FAERS Safety Report 13959095 (Version 2)
Quarter: 2017Q4

REPORT INFORMATION
  Report Type: Spontaneous
  Country: US (occurrence: US)
  Receive Date: 20170912
  Receipt Date: 20171128
  Transmission Date: 20180320
  Serious: No
  Sender: FDA-Public Use
  Company Number: US-JNJFOC-20170821187

PATIENT
  Age: 81 Year
  Sex: Female
  Weight: 58.97 kg

DRUGS (2)
  1. ZYRTEC [Suspect]
     Active Substance: CETIRIZINE HYDROCHLORIDE
     Route: 048
  2. ZYRTEC [Suspect]
     Active Substance: CETIRIZINE HYDROCHLORIDE
     Indication: SEASONAL ALLERGY
     Route: 048

REACTIONS (4)
  - Dry eye [Recovering/Resolving]
  - Eye pruritus [Recovering/Resolving]
  - Throat irritation [Recovering/Resolving]
  - Oral pruritus [Recovering/Resolving]
